FAERS Safety Report 11459471 (Version 1)
Quarter: 2015Q3

REPORT INFORMATION
  Report Type: Spontaneous
  Country: US (occurrence: US)
  Receive Date: 20150904
  Receipt Date: 20150904
  Transmission Date: 20151125
  Serious: Yes (Other)
  Sender: FDA-Public Use
  Company Number: US-TAKEDA-2014TUS005509

PATIENT

DRUGS (49)
  1. INSULIN NPH                        /01223407/ [Concomitant]
     Dosage: 26U AM, 14U PM
     Dates: start: 20130216, end: 20130622
  2. INSULINE                           /01223401/ [Concomitant]
     Active Substance: INSULIN NOS
     Dosage: 5U W/MEALS
     Dates: start: 20080919
  3. INSULINE                           /01223401/ [Concomitant]
     Active Substance: INSULIN NOS
     Dosage: 6 IU, BID
     Dates: start: 20091002
  4. INSULINE                           /01223401/ [Concomitant]
     Active Substance: INSULIN NOS
     Dosage: UNK, BID
     Dates: start: 20110414
  5. ACTOS [Suspect]
     Active Substance: PIOGLITAZONE HYDROCHLORIDE
     Dosage: 45 MG, UNK
     Route: 048
     Dates: start: 20020815, end: 20050606
  6. ACTOS [Suspect]
     Active Substance: PIOGLITAZONE HYDROCHLORIDE
     Dosage: 45 MG, UNK
     Route: 048
     Dates: start: 20030723, end: 20080925
  7. DIABETA                            /00145301/ [Concomitant]
     Dosage: UNK
  8. MICRONASE [Concomitant]
     Active Substance: GLYBURIDE
     Dosage: 5 MG, 1 QAM 2 QPM
     Dates: start: 20020419
  9. INSULIN NPH                        /01223407/ [Concomitant]
     Dosage: 28 IU, BID
     Dates: start: 20100617, end: 20101018
  10. INSULINE                           /01223401/ [Concomitant]
     Active Substance: INSULIN NOS
     Dosage: 6 U EVE
     Dates: start: 20120604
  11. ACTOS [Suspect]
     Active Substance: PIOGLITAZONE HYDROCHLORIDE
     Dosage: 30 MG, UNK
     Route: 048
     Dates: start: 20031008
  12. METFORMIN [Concomitant]
     Active Substance: METFORMIN HYDROCHLORIDE
     Dosage: 500 MG, BID
     Dates: start: 19980906
  13. DIABETA                            /00145301/ [Concomitant]
     Dosage: 5 MG, 2 AM 1 PM
     Dates: start: 20010228, end: 20010606
  14. DIABETA                            /00145301/ [Concomitant]
     Dosage: 5 MG, 1 AM 2 PM
     Dates: start: 20020211, end: 20031208
  15. DIABETA                            /00145301/ [Concomitant]
     Dosage: 5 MG,1 AM 2 PM
     Dates: start: 20050922
  16. DIABETA                            /00145301/ [Concomitant]
     Dosage: 5 MG, 1 AM 2 PM
     Dates: start: 20060922
  17. MICRONASE [Concomitant]
     Active Substance: GLYBURIDE
     Dosage: 5 MG,1 QAM 2 QPM
     Dates: start: 20011201
  18. INSULIN NPH                        /01223407/ [Concomitant]
     Dosage: 13 U AM, 12 U PM
     Dates: start: 20090423
  19. INSULIN NPH                        /01223407/ [Concomitant]
     Dosage: 10U X2 AND SLIDING SCALE
     Dates: start: 20091002
  20. INSULIN NPH                        /01223407/ [Concomitant]
     Dosage: 30 IU, BID
     Dates: start: 20110717, end: 20110926
  21. INSULINE                           /01223401/ [Concomitant]
     Active Substance: INSULIN NOS
     Dosage: AS NEEDED WLMEALS
     Dates: start: 20081020
  22. INSULINE                           /01223401/ [Concomitant]
     Active Substance: INSULIN NOS
     Dosage: 6 U EVE
     Dates: start: 201007
  23. ACTOS [Suspect]
     Active Substance: PIOGLITAZONE HYDROCHLORIDE
     Dosage: 30 MG, UNK
     Route: 048
     Dates: start: 20051121
  24. DIABETA                            /00145301/ [Concomitant]
     Dosage: 5 MG, BID
     Dates: start: 20040404, end: 20050124
  25. INSULIN NPH                        /01223407/ [Concomitant]
     Indication: DIABETES MELLITUS
     Dosage: 8U AM, 6U PM
     Dates: start: 20080804
  26. INSULIN NPH                        /01223407/ [Concomitant]
     Dosage: 17U AM, 16U PM
     Dates: start: 20091214
  27. INSULIN NPH                        /01223407/ [Concomitant]
     Dosage: 30U AM, 28U PM
     Dates: start: 20101117, end: 20110414
  28. NOVOLOG [Concomitant]
     Active Substance: INSULIN ASPART
     Indication: DIABETES MELLITUS
     Dosage: 5U W/MEALS THREE TIMES DAILY
     Dates: start: 20080925
  29. LEVEMIR [Concomitant]
     Active Substance: INSULIN DETEMIR
     Indication: DIABETES MELLITUS
     Dosage: 10 U QHS
     Dates: start: 20080804
  30. ACTOS [Suspect]
     Active Substance: PIOGLITAZONE HYDROCHLORIDE
     Dosage: 30 MG, UNK
     Route: 048
     Dates: start: 20010316, end: 20020419
  31. ACTOS [Suspect]
     Active Substance: PIOGLITAZONE HYDROCHLORIDE
     Dosage: 15 MG, UNK
     Route: 048
     Dates: start: 20090611, end: 20091002
  32. DIABETA                            /00145301/ [Concomitant]
     Dosage: 5 MG, TID
     Dates: start: 20060608
  33. LANTUS [Concomitant]
     Active Substance: INSULIN GLARGINE
     Dosage: 40 IU AT BEDTIME, UNK
     Dates: start: 20130622, end: 20131127
  34. INSULINE                           /01223401/ [Concomitant]
     Active Substance: INSULIN NOS
     Indication: DIABETES MELLITUS
     Dosage: 3U WLMEALS
     Dates: start: 20080925
  35. ACTOS [Suspect]
     Active Substance: PIOGLITAZONE HYDROCHLORIDE
     Dosage: 30 MG, UNK
     Route: 048
     Dates: start: 20060403, end: 20090324
  36. ACTOS [Suspect]
     Active Substance: PIOGLITAZONE HYDROCHLORIDE
     Dosage: 45 MG, UNK
     Route: 048
     Dates: start: 20061012
  37. DIABETA                            /00145301/ [Concomitant]
     Dosage: 5 MG, BID
     Dates: start: 20060309
  38. MICRONASE [Concomitant]
     Active Substance: GLYBURIDE
     Dosage: 5 MG,1 QAM 2 QPM
     Dates: start: 20021010
  39. INSULINE                           /01223401/ [Concomitant]
     Active Substance: INSULIN NOS
     Dosage: 28 IU, BID
     Dates: start: 20100617, end: 20100713
  40. METFORMIN [Concomitant]
     Active Substance: METFORMIN HYDROCHLORIDE
     Dosage: 500 MG, QD
     Dates: start: 20041117
  41. DIABETA                            /00145301/ [Concomitant]
     Dosage: 5 MG,1 AM 2PM
     Dates: start: 20011105
  42. INSULIN NPH                        /01223407/ [Concomitant]
     Dosage: 14U AM 11 U
     Dates: start: 20080926
  43. INSULIN NPH                        /01223407/ [Concomitant]
     Dosage: 14UAM 13U
     Dates: start: 20081020
  44. INSULIN NPH                        /01223407/ [Concomitant]
     Dosage: 25 IU, BID
     Dates: start: 20100322, end: 20100525
  45. INSULINE                           /01223401/ [Concomitant]
     Active Substance: INSULIN NOS
     Dosage: 4 IU, UNK
     Dates: start: 20111221
  46. ACTOS [Suspect]
     Active Substance: PIOGLITAZONE HYDROCHLORIDE
     Indication: TYPE 2 DIABETES MELLITUS
     Dosage: 15 MG, UNK
     Route: 048
     Dates: start: 20010228, end: 20010307
  47. ACTOS [Suspect]
     Active Substance: PIOGLITAZONE HYDROCHLORIDE
     Dosage: 15 MG, UNK
     Route: 048
     Dates: start: 20090423, end: 20091116
  48. INSULIN NPH                        /01223407/ [Concomitant]
     Dosage: INCREASE 1 IU, BID, UNTIL FBG{130
     Dates: start: 20091002
  49. INSULIN NPH                        /01223407/ [Concomitant]
     Dosage: 14 U AM, 13 U PM
     Dates: start: 20090324

REACTIONS (1)
  - Bladder cancer [Unknown]

NARRATIVE: CASE EVENT DATE: 20130425
